FAERS Safety Report 7434344-6 (Version None)
Quarter: 2011Q2

REPORT INFORMATION
  Report Type: 
  Country: None (occurrence: None)
  Receive Date: 20110425
  Receipt Date: 20060123
  Transmission Date: 20111010
  Serious: Yes (Hospitalization)
  Sender: FDA-Public Use
  Company Number: 2006PV007649

PATIENT
  Age: 52 Year
  Sex: Male
  Weight: 90.7194 kg

DRUGS (14)
  1. BUPROPION [Concomitant]
  2. PLAVIX [Concomitant]
  3. MAGNESIUM HYDROXIDE [Concomitant]
  4. IRBESARTAN [Concomitant]
  5. TENORMIN [Concomitant]
  6. METFORMIN HCL [Concomitant]
  7. BYETTA [Suspect]
     Indication: TYPE 2 DIABETES MELLITUS
     Dosage: 10 MCG;BID;SC, 5 MCG;BID;SC
     Route: 058
     Dates: start: 20060112
  8. BYETTA [Suspect]
     Indication: TYPE 2 DIABETES MELLITUS
     Dosage: 10 MCG;BID;SC, 5 MCG;BID;SC
     Route: 058
     Dates: start: 20051201, end: 20060111
  9. ASPIRIN [Concomitant]
  10. SENOKOT [Concomitant]
  11. LIPITOR [Concomitant]
  12. PROTONIX [Concomitant]
  13. DIAZEPAM [Concomitant]
  14. COLACE [Concomitant]

REACTIONS (8)
  - WEIGHT DECREASED [None]
  - DIVERTICULITIS [None]
  - TINEA PEDIS [None]
  - NAUSEA [None]
  - ASTHENIA [None]
  - DRUG DOSE OMISSION [None]
  - DECREASED APPETITE [None]
  - BLOOD GLUCOSE INCREASED [None]
